FAERS Safety Report 12892413 (Version 2)
Quarter: 2016Q4

REPORT INFORMATION
  Report Type: Spontaneous
  Country: US (occurrence: US)
  Receive Date: 20161028
  Receipt Date: 20161207
  Transmission Date: 20170207
  Serious: No
  Sender: FDA-Public Use
  Company Number: US-009507513-1610USA013312

PATIENT
  Age: 50 Year
  Sex: Male

DRUGS (1)
  1. ZEPATIER [Suspect]
     Active Substance: ELBASVIR\GRAZOPREVIR
     Indication: HEPATITIS C
     Dosage: 1 TABLET, DAILY
     Route: 048
     Dates: start: 20160824

REACTIONS (6)
  - Nausea [Unknown]
  - Rash erythematous [Unknown]
  - Exfoliative rash [Unknown]
  - Pain [Unknown]
  - Rash [Unknown]
  - Fatigue [Unknown]

NARRATIVE: CASE EVENT DATE: 2016
